FAERS Safety Report 12987221 (Version 1)
Quarter: 2016Q4

REPORT INFORMATION
  Report Type: Spontaneous
  Country: CA (occurrence: CA)
  Receive Date: 20161130
  Receipt Date: 20161130
  Transmission Date: 20170207
  Serious: Yes (Hospitalization, Other)
  Sender: FDA-Public Use
  Company Number: CA-BAUSCH-BL-2016-028277

PATIENT
  Age: 65 Year
  Sex: Male
  Weight: 79.45 kg

DRUGS (4)
  1. ACETAMINOPHINE/CODEINE PHOSPHATE [Suspect]
     Active Substance: ACETAMINOPHEN\CODEINE PHOSPHATE
     Indication: PAIN
     Route: 048
  2. ALTACE [Suspect]
     Active Substance: RAMIPRIL
     Indication: HYPERTENSION
  3. CRESTOR [Concomitant]
     Active Substance: ROSUVASTATIN CALCIUM
     Indication: PRODUCT USED FOR UNKNOWN INDICATION
     Route: 048
  4. ALTACE [Suspect]
     Active Substance: RAMIPRIL
     Indication: PAIN
     Route: 048

REACTIONS (2)
  - Drug eruption [Recovered/Resolved]
  - Renal impairment [Recovered/Resolved]
